FAERS Safety Report 8255940-2 (Version None)
Quarter: 2012Q2

REPORT INFORMATION
  Report Type: 
  Country: None (occurrence: None)
  Receive Date: 20120403
  Receipt Date: 20120323
  Transmission Date: 20120825
  Serious: Yes (Death)
  Sender: FDA-Public Use
  Company Number: US-COVIDIEN/TYCO HEALTHCARE/MALLINCKRODT-T201201196

PATIENT

DRUGS (1)
  1. OXYCODONE HCL [Suspect]
     Dosage: UNK
     Dates: end: 20010101

REACTIONS (1)
  - DEATH [None]
